FAERS Safety Report 11696806 (Version 1)
Quarter: 2015Q4

REPORT INFORMATION
  Report Type: Spontaneous
  Country: HR (occurrence: HR)
  Receive Date: 20151104
  Receipt Date: 20151104
  Transmission Date: 20160304
  Serious: Yes (Other)
  Sender: FDA-Public Use
  Company Number: HR-ELI_LILLY_AND_COMPANY-HR201510008210

PATIENT
  Age: 50 Year
  Sex: Female

DRUGS (1)
  1. ZYPREXA [Suspect]
     Active Substance: OLANZAPINE
     Indication: SCHIZOAFFECTIVE DISORDER
     Dosage: 5 MG, QD
     Route: 048
     Dates: start: 2014, end: 20150128

REACTIONS (6)
  - Cough [Unknown]
  - Pyrexia [Unknown]
  - Rash [Unknown]
  - Joint swelling [Unknown]
  - Systemic lupus erythematosus [Unknown]
  - Lupus nephritis [Unknown]

NARRATIVE: CASE EVENT DATE: 201409
